FAERS Safety Report 12909342 (Version 1)
Quarter: 2016Q4

REPORT INFORMATION
  Report Type: Spontaneous
  Country: US (occurrence: US)
  Receive Date: 20161104
  Receipt Date: 20161104
  Transmission Date: 20170207
  Serious: No
  Sender: FDA-Public Use
  Company Number: US-BAXTER-2016BAX053315

PATIENT
  Sex: Female

DRUGS (1)
  1. ARTISS [Suspect]
     Active Substance: FIBRINOGEN HUMAN\THROMBIN HUMAN
     Indication: OCCUPATIONAL EXPOSURE TO PRODUCT
     Route: 047

REACTIONS (3)
  - Exposure via eye contact [Unknown]
  - Eye irritation [Unknown]
  - Occupational exposure to product [Unknown]
